FAERS Safety Report 24784399 (Version 1)
Quarter: 2024Q4

REPORT INFORMATION
  Report Type: Spontaneous
  Country: US (occurrence: US)
  Receive Date: 20241227
  Receipt Date: 20241227
  Transmission Date: 20250115
  Serious: No
  Sender: MERCK
  Company Number: US-009507513-2412USA005732

PATIENT
  Age: 43 Year
  Sex: Male

DRUGS (3)
  1. KEYTRUDA [Suspect]
     Active Substance: PEMBROLIZUMAB
     Indication: First bite syndrome
     Dosage: UNK
     Dates: start: 2022
  2. CARBOPLATIN [Suspect]
     Active Substance: CARBOPLATIN
     Indication: First bite syndrome
     Dosage: UNK
     Dates: start: 2022
  3. PACLITAXEL [Suspect]
     Active Substance: PACLITAXEL
     Indication: First bite syndrome
     Dosage: UNK
     Dates: start: 2022

REACTIONS (1)
  - Product use issue [Unknown]

NARRATIVE: CASE EVENT DATE: 20220101
